FAERS Safety Report 4938673-7 (Version None)
Quarter: 2006Q1

REPORT INFORMATION
  Report Type: 
  Country: None (occurrence: None)
  Receive Date: 20060127
  Receipt Date: 20051023
  Transmission Date: 20060701
  Serious: Yes (Other)
  Sender: FDA-Public Use
  Company Number: 2005147986

PATIENT
  Age: 79 Year
  Sex: Female
  Weight: 49.8957 kg

DRUGS (6)
  1. LYRICA [Suspect]
     Indication: POST HERPETIC NEURALGIA
     Dosage: 50 MG (50 MG,1 IN 1 D),ORAL
     Route: 048
     Dates: start: 20051022
  2. INFLUENZA VACCINE (INFLUENZA VACCINE) [Suspect]
     Indication: PROPHYLAXIS
     Dates: start: 20051022, end: 20051022
  3. ZOCOR [Concomitant]
  4. FOSAMAX [Concomitant]
  5. VICODIN [Concomitant]
  6. TEMAZEPAM [Concomitant]

REACTIONS (3)
  - FEAR OF FALLING [None]
  - FEELING DRUNK [None]
  - INSOMNIA [None]
